FAERS Safety Report 20754722 (Version 5)
Quarter: 2022Q2

REPORT INFORMATION
  Report Type: Spontaneous
  Country: US (occurrence: US)
  Receive Date: 20220427
  Receipt Date: 20220505
  Transmission Date: 20220720
  Serious: Yes (Death, Hospitalization, Other)
  Sender: FDA-Public Use
  Company Number: US-ABBVIE-22K-163-4371991-00

PATIENT
  Sex: Female
  Weight: 47.670 kg

DRUGS (8)
  1. DUOPA [Suspect]
     Active Substance: CARBIDOPA\LEVODOPA
     Indication: Parkinson^s disease
     Route: 050
     Dates: start: 2019, end: 20220425
  2. DUOPA [Suspect]
     Active Substance: CARBIDOPA\LEVODOPA
  3. ZANAFLEX [Concomitant]
     Active Substance: TIZANIDINE HYDROCHLORIDE
     Indication: Muscle spasms
  4. GABAPENTIN [Concomitant]
     Active Substance: GABAPENTIN
     Indication: Pain
  5. CYMBALTA [Concomitant]
     Active Substance: DULOXETINE HYDROCHLORIDE
     Indication: Affective disorder
  6. BENADRYL [Concomitant]
     Active Substance: DIPHENHYDRAMINE HYDROCHLORIDE
     Indication: Pruritus
  7. BENADRYL [Concomitant]
     Active Substance: DIPHENHYDRAMINE HYDROCHLORIDE
     Indication: Sleep disorder
  8. KLONOPIN [Concomitant]
     Active Substance: CLONAZEPAM
     Indication: Anxiety

REACTIONS (7)
  - Parkinson^s disease [Fatal]
  - Hip fracture [Recovered/Resolved]
  - Hypophagia [Not Recovered/Not Resolved]
  - Tooth extraction [Recovered/Resolved]
  - Dysstasia [Not Recovered/Not Resolved]
  - Device leakage [Unknown]
  - Abnormal loss of weight [Not Recovered/Not Resolved]

NARRATIVE: CASE EVENT DATE: 20200101
